FAERS Safety Report 15131486 (Version 1)
Quarter: 2018Q3

REPORT INFORMATION
  Report Type: Spontaneous
  Country: AT (occurrence: AT)
  Receive Date: 20180711
  Receipt Date: 20180711
  Transmission Date: 20181010
  Serious: Yes (Hospitalization, Other)
  Sender: FDA-Public Use
  Company Number: AT-MYLANLABS-2018M1048832

PATIENT
  Age: 63 Year
  Sex: Male

DRUGS (4)
  1. PRAMIPEXOLE. [Suspect]
     Active Substance: PRAMIPEXOLE
     Indication: PRODUCT USED FOR UNKNOWN INDICATION
     Dosage: 2.1 MG, QD
     Route: 065
  2. SELEGILLIN [Concomitant]
     Indication: PRODUCT USED FOR UNKNOWN INDICATION
     Dosage: 10 MG, QD
     Route: 065
  3. AMANTADIN                          /00055901/ [Concomitant]
     Active Substance: AMANTADINE
     Indication: PRODUCT USED FOR UNKNOWN INDICATION
     Dosage: UNK, QD
     Route: 065
  4. CARBIDOPA + L?DOPA [Concomitant]
     Active Substance: CARBIDOPA\LEVODOPA
     Indication: PRODUCT USED FOR UNKNOWN INDICATION
     Dosage: 100/25MG, 3
     Route: 065

REACTIONS (6)
  - Therapeutic response shortened [Unknown]
  - Suicide attempt [Unknown]
  - Agitation [Unknown]
  - Dyskinesia [Unknown]
  - Impulse-control disorder [Unknown]
  - Psychotic disorder [Recovered/Resolved]
